FAERS Safety Report 9914653 (Version 3)
Quarter: 2014Q2

REPORT INFORMATION
  Report Type: Report from Study
  Country: MX (occurrence: MX)
  Receive Date: 20140220
  Receipt Date: 20140403
  Transmission Date: 20141212
  Serious: Yes (Disabling, Other)
  Sender: FDA-Public Use
  Company Number: MX-ABBVIE-14P-107-1204274-00

PATIENT
  Age: 39 Year
  Sex: Female
  Weight: 91 kg

DRUGS (11)
  1. HUMIRA [Suspect]
     Indication: RHEUMATOID ARTHRITIS
     Route: 058
     Dates: start: 20130320
  2. PREDNISONE [Suspect]
     Indication: PAIN
     Route: 048
     Dates: start: 2008, end: 20140204
  3. PREDNISONE [Suspect]
     Indication: INFLAMMATION
  4. CLONAZEPAM [Concomitant]
     Indication: INSOMNIA
     Route: 048
     Dates: start: 1998
  5. SULFASALAZINE [Concomitant]
     Indication: RHEUMATOID ARTHRITIS
     Route: 048
     Dates: start: 2002
  6. METHOTREXATE [Concomitant]
     Indication: RHEUMATOID ARTHRITIS
     Dosage: 4 ON FRI, 3 ON SAT
     Route: 048
     Dates: start: 2002
  7. FOLIC ACID [Concomitant]
     Indication: VITAMIN SUPPLEMENTATION
     Route: 048
     Dates: start: 1998
  8. TRAMADOL [Concomitant]
     Indication: PAIN
     Route: 048
     Dates: start: 201309
  9. GABAPENTIN [Concomitant]
     Indication: PAIN
     Route: 048
     Dates: start: 2002
  10. CELEBREX [Concomitant]
     Indication: PAIN
     Route: 048
     Dates: start: 2002
  11. PAROXETINE [Concomitant]
     Indication: DEPRESSION
     Route: 048
     Dates: start: 2008

REACTIONS (7)
  - Generalised oedema [Recovered/Resolved]
  - Gait disturbance [Unknown]
  - Mobility decreased [Unknown]
  - Arthralgia [Recovering/Resolving]
  - Headache [Recovered/Resolved]
  - Steroid therapy [Unknown]
  - White blood cell count increased [Unknown]
